FAERS Safety Report 9538305 (Version 2)
Quarter: 2014Q2

REPORT INFORMATION
  Report Type: Spontaneous
  Country: FR (occurrence: FR)
  Receive Date: 20130920
  Receipt Date: 20140513
  Transmission Date: 20141212
  Serious: Yes (Other)
  Sender: FDA-Public Use
  Company Number: FR-009507513-1309FRA005737

PATIENT
  Age: 46 Year
  Sex: Female

DRUGS (6)
  1. EMEND [Suspect]
     Indication: PROPHYLAXIS OF NAUSEA AND VOMITING
     Dosage: 125 MG, CYCLICAL
     Route: 048
  2. TAXOTERE [Suspect]
     Dosage: 180 MG, ONCE
     Route: 042
     Dates: start: 20130718, end: 20130718
  3. LEVOTHYROX [Concomitant]
     Dosage: UNK
     Route: 048
  4. EFFEXOR [Concomitant]
     Dosage: UNK
     Route: 048
  5. DEXAMETHASONE [Concomitant]
     Dosage: 12 MG, CYCLICAL
  6. ONDANSETRON [Concomitant]
     Dosage: 8 MG, CYCLICAL

REACTIONS (3)
  - Palmar-plantar erythrodysaesthesia syndrome [Recovered/Resolved with Sequelae]
  - Myalgia [Recovered/Resolved]
  - Arthralgia [Recovered/Resolved]
